FAERS Safety Report 24465800 (Version 1)
Quarter: 2024Q4

REPORT INFORMATION
  Report Type: Spontaneous
  Country: US (occurrence: US)
  Receive Date: 20241018
  Receipt Date: 20241018
  Transmission Date: 20250115
  Serious: No
  Sender: ROCHE
  Company Number: US-ROCHE-3543455

PATIENT
  Age: 80 Year
  Sex: Female

DRUGS (4)
  1. XOLAIR [Suspect]
     Active Substance: OMALIZUMAB
     Indication: Product used for unknown indication
     Route: 065
     Dates: start: 20230201
  2. XOLAIR [Suspect]
     Active Substance: OMALIZUMAB
     Dosage: TWO INJECTIONS AT 300 MG
     Route: 065
     Dates: start: 20240201
  3. FAMOTIDINE [Concomitant]
     Active Substance: FAMOTIDINE
  4. MONTELUKAST [Concomitant]
     Active Substance: MONTELUKAST

REACTIONS (1)
  - Urticaria [Unknown]
